FAERS Safety Report 4645758-1 (Version None)
Quarter: 2005Q2

REPORT INFORMATION
  Report Type: 
  Country: None (occurrence: None)
  Receive Date: 20050425
  Receipt Date: 20050412
  Transmission Date: 20051028
  Serious: Yes (Hospitalization)
  Sender: FDA-Public Use
  Company Number: 2005059081

PATIENT
  Age: 77 Year
  Sex: Female

DRUGS (8)
  1. ATARAX [Suspect]
     Indication: COUGH
     Dosage: 25 MG (1 D), ORAL
     Route: 048
     Dates: start: 20040401, end: 20050515
  2. EBASTINE [Suspect]
     Indication: COUGH
     Dosage: 20 MG (1 D), ORAL
     Route: 048
     Dates: start: 20040401, end: 20040515
  3. MODURETIC ^MSD^ (AMILORIDE HYDROCHLORIDE, HYDROCHLOROTHIAZIDE) [Concomitant]
  4. TROXERUTIN (TROXERUTIN) [Concomitant]
  5. ASPIRIN [Concomitant]
  6. CITALOPRAM HYDROBROMIDE [Concomitant]
  7. LORMETAZEPAM (LORMETAZEPAM) [Concomitant]
  8. METAMIZOLE MAGNESIUM (METAMIZOLE MAGNESIUM) [Concomitant]

REACTIONS (1)
  - DEMENTIA [None]
